FAERS Safety Report 24420180 (Version 2)
Quarter: 2024Q4

REPORT INFORMATION
  Report Type: Report from Study
  Country: US (occurrence: US)
  Receive Date: 20241010
  Receipt Date: 20241018
  Transmission Date: 20250115
  Serious: No
  Sender: ROCHE
  Company Number: US-ROCHE-3543667

PATIENT
  Age: 71 Year
  Sex: Female

DRUGS (3)
  1. ACTIVASE [Suspect]
     Active Substance: ALTEPLASE
     Indication: Hemiplegia
     Route: 065
     Dates: start: 20240305
  2. ACTIVASE [Suspect]
     Active Substance: ALTEPLASE
     Indication: Hemiparesis
  3. ACTIVASE [Suspect]
     Active Substance: ALTEPLASE
     Indication: Cerebral infarction

REACTIONS (2)
  - Off label use [Unknown]
  - No adverse event [Unknown]
